FAERS Safety Report 8105285-6 (Version None)
Quarter: 2012Q1

REPORT INFORMATION
  Report Type: 
  Country: None (occurrence: None)
  Receive Date: 20120201
  Receipt Date: 20120125
  Transmission Date: 20120608
  Serious: Yes (Other)
  Sender: FDA-Public Use
  Company Number: PHEH2011US07070

PATIENT
  Sex: Female
  Weight: 61.224 kg

DRUGS (10)
  1. DEPAKOTE [Concomitant]
  2. CALCIUM [Concomitant]
     Dosage: UNK UKN, UNK
  3. VITAMIN D [Concomitant]
     Dosage: UNK UKN, UNK
  4. PRIMIDONE [Concomitant]
  5. GILENYA [Suspect]
     Indication: MULTIPLE SCLEROSIS
     Dosage: 0.5 MG, QD
     Route: 048
     Dates: start: 20110907, end: 20111214
  6. LITHIUM CARBONATE [Concomitant]
     Route: 048
  7. FAMPRIDINE [Concomitant]
     Route: 048
  8. FOSAMAX [Concomitant]
  9. TEMAZEPAM [Concomitant]
     Route: 048
  10. SYNTHROID [Concomitant]

REACTIONS (7)
  - FEELING ABNORMAL [None]
  - WEIGHT DECREASED [None]
  - URINARY TRACT INFECTION [None]
  - HYPOAESTHESIA [None]
  - ASTHENIA [None]
  - MIGRAINE [None]
  - PARAESTHESIA [None]
